FAERS Safety Report 6712327-9 (Version None)
Quarter: 2010Q2

REPORT INFORMATION
  Report Type: 
  Country: None (occurrence: None)
  Receive Date: 20100505
  Receipt Date: 20100425
  Transmission Date: 20101027
  Serious: Yes (Hospitalization, Other)
  Sender: FDA-Public Use
  Company Number: JP-ABBOTT-10P-087-0633406-00

PATIENT
  Sex: Female
  Weight: 60 kg

DRUGS (1)
  1. HUMIRA [Suspect]
     Indication: RHEUMATOID ARTHRITIS
     Route: 058
     Dates: start: 20100126, end: 20100223

REACTIONS (2)
  - DEAFNESS BILATERAL [None]
  - DEAFNESS NEUROSENSORY [None]
